FAERS Safety Report 9711803 (Version 1)
Quarter: 2013Q4

REPORT INFORMATION
  Report Type: Spontaneous
  Country: SG (occurrence: SG)
  Receive Date: 20131126
  Receipt Date: 20131126
  Transmission Date: 20140711
  Serious: Yes (Other)
  Sender: FDA-Public Use
  Company Number: SG-BAYER-2013-139907

PATIENT
  Age: 31 Year
  Sex: Male

DRUGS (1)
  1. NIFEDIPINE [Suspect]
     Dosage: 60 MG, UNK
     Route: 048
     Dates: start: 20131005

REACTIONS (1)
  - Gingival swelling [Not Recovered/Not Resolved]
